FAERS Safety Report 6875531-5 (Version None)
Quarter: 2010Q3

REPORT INFORMATION
  Report Type: 
  Country: None (occurrence: None)
  Receive Date: 20100727
  Receipt Date: 20100713
  Transmission Date: 20110219
  Serious: Yes (Other)
  Sender: FDA-Public Use
  Company Number: FR-JNJFOC-20100701363

PATIENT
  Age: 56 Year
  Sex: Female

DRUGS (4)
  1. IXPRIM [Suspect]
     Indication: ARTHRALGIA
     Route: 048
  2. IXPRIM [Suspect]
     Route: 048
  3. PANTOPRAZOLE SODIUM [Concomitant]
     Indication: GASTROOESOPHAGEAL REFLUX DISEASE
     Route: 065
  4. CLIMASTON [Concomitant]
     Indication: MENOPAUSE
     Route: 065

REACTIONS (4)
  - ERYTHEMA [None]
  - INFLUENZA [None]
  - PARAESTHESIA [None]
  - WITHDRAWAL SYNDROME [None]
